FAERS Safety Report 7089547-X (Version None)
Quarter: 2010Q4

REPORT INFORMATION
  Report Type: 
  Country: None (occurrence: None)
  Receive Date: 20101029
  Receipt Date: 20101020
  Transmission Date: 20110411
  Serious: Yes (Life-Threatening, Other)
  Sender: FDA-Public Use
  Company Number: TCI2009A02557

PATIENT
  Age: 69 Year
  Sex: Female

DRUGS (25)
  1. LANSOPRAZOLE [Suspect]
     Indication: PROPHYLAXIS
     Dosage: 30 MG (30 MG,1 IN 1 D) PER ORAL
     Route: 048
     Dates: start: 20090616, end: 20090620
  2. LANSOPRAZOLE [Suspect]
     Indication: ULCER
     Dosage: 30 MG (30 MG,1 IN 1 D) PER ORAL
     Route: 048
     Dates: start: 20090616, end: 20090620
  3. OMEPRAZOLE [Suspect]
     Indication: PROPHYLAXIS
     Dosage: SEE IMAGE
     Route: 042
     Dates: start: 20090608, end: 20090615
  4. OMEPRAZOLE [Suspect]
     Indication: ULCER
     Dosage: SEE IMAGE
     Route: 042
     Dates: start: 20090608, end: 20090615
  5. OMEPRAZOLE [Suspect]
     Indication: PROPHYLAXIS
     Dosage: SEE IMAGE
     Route: 042
     Dates: start: 20090622, end: 20090624
  6. OMEPRAZOLE [Suspect]
     Indication: ULCER
     Dosage: SEE IMAGE
     Route: 042
     Dates: start: 20090622, end: 20090624
  7. OMEPRAZOLE [Suspect]
     Indication: PROPHYLAXIS
     Dosage: SEE IMAGE
     Route: 042
     Dates: start: 20090626, end: 20090627
  8. OMEPRAZOLE [Suspect]
     Indication: ULCER
     Dosage: SEE IMAGE
     Route: 042
     Dates: start: 20090626, end: 20090627
  9. HEPARIN CALCIUM [Suspect]
     Indication: THROMBOSIS PROPHYLAXIS
     Dosage: 0.5 DF (0.25 DF,2 IN 1 D) SUBCTANEOUS ; 0.5 DF (0.25 DF,2 IN 1 D) SUBCUTANEOUS
     Route: 058
     Dates: start: 20090609, end: 20090611
  10. HEPARIN CALCIUM [Suspect]
     Indication: THROMBOSIS PROPHYLAXIS
     Dosage: 0.5 DF (0.25 DF,2 IN 1 D) SUBCTANEOUS ; 0.5 DF (0.25 DF,2 IN 1 D) SUBCUTANEOUS
     Route: 058
     Dates: start: 20090625, end: 20090703
  11. VANCOMYCIN [Suspect]
     Indication: PNEUMONIA STAPHYLOCOCCAL
     Dosage: 2 GM (1 GM,2 IN 1 D) INTRAVENOUS DRIP ; 1.5 GM (0.75 GM,2 IN 1 D) INTRAVENOUS DRIP
     Route: 041
     Dates: start: 20090611, end: 20090616
  12. VANCOMYCIN [Suspect]
     Indication: PNEUMONIA STAPHYLOCOCCAL
     Dosage: 2 GM (1 GM,2 IN 1 D) INTRAVENOUS DRIP ; 1.5 GM (0.75 GM,2 IN 1 D) INTRAVENOUS DRIP
     Route: 041
     Dates: start: 20090617, end: 20090624
  13. CLEANAL (FUDOSTEINE) [Suspect]
     Indication: RESPIRATORY THERAPY
     Dosage: 15 ML (5 ML,3 IN 1 D) PER ORAL
     Route: 048
     Dates: start: 20090615, end: 20090620
  14. ZOSYN [Suspect]
     Indication: PNEUMONIA ASPIRATION
     Dosage: 4.5 GM (4.5 GM,1 IN 1 D) INTRAVENOUS DRIP
     Route: 041
     Dates: start: 20090621, end: 20090622
  15. FAMOTIDINE [Suspect]
     Indication: PROPHYLAXIS
     Dosage: 40 MG (20 MG,2 IN 1 D) PER ORAL ; 20 MG (20 MG,1 IN 1 D) PER ORAL
     Route: 048
     Dates: start: 20090625, end: 20090625
  16. FAMOTIDINE [Suspect]
     Indication: ULCER
     Dosage: 40 MG (20 MG,2 IN 1 D) PER ORAL ; 20 MG (20 MG,1 IN 1 D) PER ORAL
     Route: 048
     Dates: start: 20090625, end: 20090625
  17. FAMOTIDINE [Suspect]
     Indication: PROPHYLAXIS
     Dosage: 40 MG (20 MG,2 IN 1 D) PER ORAL ; 20 MG (20 MG,1 IN 1 D) PER ORAL
     Route: 048
     Dates: start: 20090628, end: 20090703
  18. FAMOTIDINE [Suspect]
     Indication: ULCER
     Dosage: 40 MG (20 MG,2 IN 1 D) PER ORAL ; 20 MG (20 MG,1 IN 1 D) PER ORAL
     Route: 048
     Dates: start: 20090628, end: 20090703
  19. EVOXAC [Concomitant]
  20. SALIVEHT (DIBASIC POTASSIUM PHOSPHATE/INORGANIC SALTS COMBINED DRUG) ( [Concomitant]
  21. FENTANYL SANKYO (FENTANYL CITRATE) [Concomitant]
  22. MAGNESOL (MAGNESIUM SULFATE/GLUCOSE) (ALL OTHER THERAPEUTIC PRODUCTS) [Concomitant]
  23. PROPOFOL MYLAN (PROPOFOL) [Concomitant]
  24. FLURBIPROFEN [Concomitant]
  25. FULCALIQ 3 (MIXED AMINO ACID/CARBOHYDRATE/ELECTROLYTE/VITAMIN COMBINED [Concomitant]

REACTIONS (8)
  - ALANINE AMINOTRANSFERASE INCREASED [None]
  - ASPARTATE AMINOTRANSFERASE INCREASED [None]
  - GAMMA-GLUTAMYLTRANSFERASE INCREASED [None]
  - HYPOKALAEMIA [None]
  - SEPSIS [None]
  - STAPHYLOCOCCAL INFECTION [None]
  - STEVENS-JOHNSON SYNDROME [None]
  - TOXIC EPIDERMAL NECROLYSIS [None]
